FAERS Safety Report 5830689-1 (Version None)
Quarter: 2008Q3

REPORT INFORMATION
  Report Type: 
  Country: None (occurrence: None)
  Receive Date: 20080801
  Receipt Date: 20071008
  Transmission Date: 20090109
  Serious: Yes (Hospitalization, Other)
  Sender: FDA-Public Use
  Company Number: US-BRISTOL-MYERS SQUIBB COMPANY-13933270

PATIENT
  Age: 55 Year
  Sex: Male
  Weight: 78 kg

DRUGS (2)
  1. COUMADIN [Suspect]
     Indication: THROMBOSIS
     Dosage: DOSE: 7.5 MG FOR THE FIRST THREE DAYS. 10 MG ON THE 4TH DAY.
     Route: 048
     Dates: start: 20071004
  2. LOVENOX [Suspect]

REACTIONS (1)
  - INTERNATIONAL NORMALISED RATIO DECREASED [None]
